FAERS Safety Report 6503863-9 (Version None)
Quarter: 2009Q4

REPORT INFORMATION
  Report Type: 
  Country: None (occurrence: None)
  Receive Date: 20091217
  Receipt Date: 20091208
  Transmission Date: 20100525
  Serious: Yes (Hospitalization)
  Sender: FDA-Public Use
  Company Number: B0609089A

PATIENT
  Sex: Male

DRUGS (5)
  1. PAXIL [Suspect]
     Indication: DRUG USE FOR UNKNOWN INDICATION
     Dosage: 40MG PER DAY
     Route: 048
     Dates: start: 20091017, end: 20091119
  2. LAMICTAL [Suspect]
     Indication: DRUG USE FOR UNKNOWN INDICATION
     Dosage: 50MG TWICE PER DAY
     Route: 048
     Dates: start: 20091017, end: 20091119
  3. ZYPREXA [Concomitant]
     Dosage: 5MG PER DAY
     Route: 048
     Dates: end: 20091119
  4. TEGRETOL [Concomitant]
     Dosage: 800MG PER DAY
     Route: 048
     Dates: start: 20091003, end: 20091119
  5. LENDORMIN [Concomitant]
     Dosage: .25MG PER DAY
     Route: 048
     Dates: end: 20091119

REACTIONS (11)
  - ALANINE AMINOTRANSFERASE INCREASED [None]
  - ASPARTATE AMINOTRANSFERASE INCREASED [None]
  - BASOPHIL COUNT DECREASED [None]
  - BLOOD ALKALINE PHOSPHATASE INCREASED [None]
  - DRUG RASH WITH EOSINOPHILIA AND SYSTEMIC SYMPTOMS [None]
  - EOSINOPHIL COUNT INCREASED [None]
  - GAMMA-GLUTAMYLTRANSFERASE INCREASED [None]
  - LYMPHOCYTE COUNT DECREASED [None]
  - LYMPHOCYTE MORPHOLOGY ABNORMAL [None]
  - RASH [None]
  - WHITE BLOOD CELL COUNT INCREASED [None]
